FAERS Safety Report 6737783-1 (Version None)
Quarter: 2010Q2

REPORT INFORMATION
  Report Type: 
  Country: None (occurrence: None)
  Receive Date: 20100524
  Receipt Date: 20100513
  Transmission Date: 20101027
  Serious: Yes (Hospitalization, Other)
  Sender: FDA-Public Use
  Company Number: FR-ASTRAZENECA-2009SE28623

PATIENT
  Age: 2 Day
  Sex: Male
  Weight: 3.2 kg

DRUGS (5)
  1. OMEPRAZOLE [Suspect]
     Indication: DRUG USE FOR UNKNOWN INDICATION
     Route: 064
  2. PREDNISONE TAB [Suspect]
     Indication: ALLERGIC GRANULOMATOUS ANGIITIS
     Route: 064
  3. FLUTICASONE PROPIONATE [Suspect]
     Indication: ASTHMA
     Dosage: 1,000 UG/50 UG
     Route: 064
  4. BECLOMETHASONE DIPROPIONATE [Suspect]
     Indication: NASAL POLYPS
     Dosage: 200 UG
     Route: 064
  5. HYDROXYZINE [Suspect]
     Indication: DRUG USE FOR UNKNOWN INDICATION
     Route: 064

REACTIONS (4)
  - ADRENAL INSUFFICIENCY NEONATAL [None]
  - CONVULSION [None]
  - ERYSIPELAS [None]
  - HYPOGLYCAEMIA [None]
